FAERS Safety Report 7161726-2 (Version None)
Quarter: 2010Q4

REPORT INFORMATION
  Report Type: 
  Country: None (occurrence: None)
  Receive Date: 20101215
  Receipt Date: 20101202
  Transmission Date: 20110411
  Serious: Yes (Hospitalization, Other)
  Sender: FDA-Public Use
  Company Number: FR-ELI_LILLY_AND_COMPANY-FR201012001237

PATIENT
  Sex: Male

DRUGS (4)
  1. ZYPREXA [Suspect]
     Indication: PSYCHOTIC DISORDER
     Route: 048
  2. ZYPADHERA [Suspect]
     Indication: PSYCHOTIC DISORDER
     Dosage: 300 MG, EVERY 2 WEEKS
     Route: 030
     Dates: start: 20101116
  3. TERCIAN [Concomitant]
     Indication: PSYCHOTIC DISORDER
     Dosage: UNK, UNKNOWN
     Route: 030
  4. LOXAPAC [Concomitant]
     Dosage: UNK, UNKNOWN
     Route: 030

REACTIONS (3)
  - AGITATION [None]
  - INJECTION SITE NECROSIS [None]
  - PSYCHOTIC DISORDER [None]
